FAERS Safety Report 9563823 (Version 1)
Quarter: 2013Q1

REPORT INFORMATION
  Report Type: Spontaneous
  Country: US (occurrence: None)
  Receive Date: 20121212
  Receipt Date: 20121212
  Transmission Date: 20140127
  Serious: No
  Sender: FDA-Public Use
  Company Number: 1209USA001960

PATIENT
  Age: 63 Year
  Sex: Female
  Weight: 67.1 kg

DRUGS (3)
  1. PEGINTRON [Suspect]
     Indication: HEPATITIS B
     Dates: start: 20120101
  2. VICTRELIS [Suspect]
     Indication: HEPATITIS B
     Dates: start: 20120129
  3. RIBASPHERE [Concomitant]

REACTIONS (12)
  - Dizziness postural [None]
  - Blood glucose decreased [None]
  - Skin lesion [None]
  - Vomiting [None]
  - Drug dose omission [None]
  - Red blood cell count decreased [None]
  - Weight decreased [None]
  - Asthenia [None]
  - White blood cell count decreased [None]
  - Nausea [None]
  - Decreased appetite [None]
  - Dry skin [None]
